FAERS Safety Report 11740771 (Version 2)
Quarter: 2015Q4

REPORT INFORMATION
  Report Type: Spontaneous
  Country: BE (occurrence: BE)
  Receive Date: 20151114
  Receipt Date: 20151208
  Transmission Date: 20160304
  Serious: Yes (Hospitalization, Other)
  Sender: FDA-Public Use
  Company Number: BE-BRISTOL-MYERS SQUIBB COMPANY-BMS-2015-061089

PATIENT
  Age: 72 Year
  Sex: Male

DRUGS (3)
  1. YERVOY [Suspect]
     Active Substance: IPILIMUMAB
     Dosage: 300 MG, UNK
     Route: 065
     Dates: start: 20150720
  2. YERVOY [Suspect]
     Active Substance: IPILIMUMAB
     Dosage: 300 UNK, UNK
     Route: 042
     Dates: start: 20150708, end: 20150708
  3. YERVOY [Suspect]
     Active Substance: IPILIMUMAB
     Indication: METASTATIC MALIGNANT MELANOMA
     Dosage: 300 MG, UNK
     Route: 042
     Dates: start: 20150629

REACTIONS (4)
  - Varicella [Unknown]
  - Skin necrosis [Not Recovered/Not Resolved]
  - Staphylococcal sepsis [Not Recovered/Not Resolved]
  - Erysipelas [Unknown]

NARRATIVE: CASE EVENT DATE: 20150727
